FAERS Safety Report 14078436 (Version 3)
Quarter: 2018Q3

REPORT INFORMATION
  Report Type: Spontaneous
  Country: US (occurrence: US)
  Receive Date: 20171012
  Receipt Date: 20180810
  Transmission Date: 20181010
  Serious: No
  Sender: FDA-Public Use
  Company Number: US-PFIZER INC-2017439351

PATIENT
  Age: 60 Year
  Sex: Male
  Weight: 81 kg

DRUGS (1)
  1. XELJANZ [Suspect]
     Active Substance: TOFACITINIB CITRATE
     Indication: RHEUMATOID ARTHRITIS
     Dosage: 5 MG, TWICE A DAY
     Route: 048
     Dates: start: 201708

REACTIONS (6)
  - Pruritus [Not Recovered/Not Resolved]
  - Change of bowel habit [Unknown]
  - Herpes zoster [Unknown]
  - Skin exfoliation [Unknown]
  - Blood triglycerides increased [Recovering/Resolving]
  - Skin atrophy [Unknown]

NARRATIVE: CASE EVENT DATE: 201804
